FAERS Safety Report 11909607 (Version 2)
Quarter: 2016Q1

REPORT INFORMATION
  Report Type: Spontaneous
  Country: AU (occurrence: AU)
  Receive Date: 20160112
  Receipt Date: 20160125
  Transmission Date: 20160526
  Serious: Yes (Death)
  Sender: FDA-Public Use
  Company Number: AU-009507513-1508AUS013846

PATIENT
  Age: 35 Year
  Sex: Female

DRUGS (2)
  1. KEYTRUDA [Suspect]
     Active Substance: PEMBROLIZUMAB
     Indication: OSTEOSARCOMA METASTATIC
     Dosage: 100 MG, Q3W
     Dates: start: 20150430, end: 20150703
  2. IPILIMUMAB [Concomitant]
     Active Substance: IPILIMUMAB
     Dosage: UNK
     Dates: start: 20151029

REACTIONS (2)
  - Malignant neoplasm progression [Fatal]
  - Off label use [Unknown]

NARRATIVE: CASE EVENT DATE: 2015
